FAERS Safety Report 8531063-X (Version None)
Quarter: 2012Q3

REPORT INFORMATION
  Report Type: 
  Country: None (occurrence: None)
  Receive Date: 20120710
  Receipt Date: 20120626
  Transmission Date: 20120928
  Serious: Yes (Other)
  Sender: FDA-Public Use
  Company Number: 2012P1046011

PATIENT

DRUGS (1)
  1. ONDANSETRON [Suspect]
     Dosage: 4 MG;IV
     Route: 042

REACTIONS (1)
  - ENDOTRACHEAL INTUBATION [None]
